FAERS Safety Report 21373210 (Version 1)
Quarter: 2022Q3

REPORT INFORMATION
  Report Type: Spontaneous
  Country: US (occurrence: US)
  Receive Date: 20220924
  Receipt Date: 20220924
  Transmission Date: 20221026
  Serious: No
  Sender: FDA-Public Use
  Company Number: US-CTI BIOPHARMA-2022US02979

PATIENT
  Sex: Female

DRUGS (2)
  1. VONJO [Suspect]
     Active Substance: PACRITINIB
     Indication: Product used for unknown indication
     Dosage: UNK
     Dates: start: 2022, end: 2022
  2. CARDIZEM [Suspect]
     Active Substance: DILTIAZEM HYDROCHLORIDE
     Indication: Product used for unknown indication
     Dosage: UNK

REACTIONS (6)
  - Abdominal discomfort [Unknown]
  - Splenomegaly [Unknown]
  - Transfusion [Unknown]
  - Nausea [Unknown]
  - Platelet count decreased [Unknown]
  - Drug interaction [None]

NARRATIVE: CASE EVENT DATE: 20220101
